FAERS Safety Report 4885787-6 (Version None)
Quarter: 2006Q1

REPORT INFORMATION
  Report Type: 
  Country: None (occurrence: None)
  Receive Date: 20060117
  Receipt Date: 20060111
  Transmission Date: 20060701
  Serious: Yes (Other)
  Sender: FDA-Public Use
  Company Number: FRWYE064618OCT05

PATIENT
  Age: 53 Year
  Sex: Female

DRUGS (1)
  1. EFFEXOR [Suspect]
     Indication: DEPRESSION
     Dosage: PROGRESSIVELY INCREASED UP TO 150 MG DAILY
     Route: 048
     Dates: start: 20050912

REACTIONS (4)
  - CONCOMITANT DISEASE AGGRAVATED [None]
  - DUBIN-JOHNSON SYNDROME [None]
  - MIGRAINE [None]
  - SUPERINFECTION LUNG [None]
